FAERS Safety Report 15876058 (Version 1)
Quarter: 2019Q1

REPORT INFORMATION
  Report Type: Spontaneous
  Country: AU (occurrence: AU)
  Receive Date: 20190126
  Receipt Date: 20190126
  Transmission Date: 20190417
  Serious: Yes (Death, Other)
  Sender: FDA-Public Use
  Company Number: PHHY2019AU017209

PATIENT
  Age: 67 Year
  Sex: Male

DRUGS (2)
  1. MEKINIST [Suspect]
     Active Substance: TRAMETINIB DIMETHYL SULFOXIDE
     Indication: THYROID CANCER METASTATIC
     Dosage: 2 MG, QD
     Route: 065
  2. TAFINLAR [Suspect]
     Active Substance: DABRAFENIB MESYLATE
     Indication: THYROID CANCER METASTATIC
     Dosage: 150 MG, BID
     Route: 065

REACTIONS (2)
  - Death [Fatal]
  - Respiratory failure [Unknown]

NARRATIVE: CASE EVENT DATE: 201901
